FAERS Safety Report 6287388-4 (Version None)
Quarter: 2009Q3

REPORT INFORMATION
  Report Type: 
  Country: None (occurrence: None)
  Receive Date: 20090728
  Receipt Date: 20090715
  Transmission Date: 20100115
  Serious: Yes (Life-Threatening)
  Sender: FDA-Public Use
  Company Number: GB-BAUSCH-2009BL003566

PATIENT
  Age: 9 Week
  Sex: Male
  Weight: 2 kg

DRUGS (5)
  1. PHENYLEPHRINE [Suspect]
     Indication: RETINOPATHY OF PREMATURITY
     Route: 047
     Dates: start: 20090612, end: 20090612
  2. DALIVIT [Concomitant]
     Indication: VITAMIN SUPPLEMENTATION
     Route: 048
  3. FOLIC ACID [Concomitant]
     Indication: VITAMIN SUPPLEMENTATION
     Route: 048
     Dates: start: 20090424
  4. GAVISCON [Concomitant]
     Route: 048
     Dates: start: 20090514
  5. SODIUM CHLORIDE [Concomitant]
     Indication: BLOOD SODIUM DECREASED
     Route: 048
     Dates: start: 20090601

REACTIONS (2)
  - BRADYCARDIA [None]
  - OXYGEN SATURATION DECREASED [None]
